FAERS Safety Report 6075087-3 (Version None)
Quarter: 2009Q1

REPORT INFORMATION
  Report Type: 
  Country: None (occurrence: None)
  Receive Date: 20090210
  Receipt Date: 20090210
  Transmission Date: 20090719
  Serious: Yes (Other)
  Sender: FDA-Public Use
  Company Number: None

PATIENT
  Sex: Female

DRUGS (1)
  1. RISPERDAL [Suspect]

REACTIONS (5)
  - ACCIDENTAL NEEDLE STICK [None]
  - DEVICE BREAKAGE [None]
  - DEVICE FAILURE [None]
  - DEVICE MALFUNCTION [None]
  - MEDICAL DEVICE COMPLICATION [None]
